FAERS Safety Report 5900418-1 (Version None)
Quarter: 2008Q3

REPORT INFORMATION
  Report Type: 
  Country: None (occurrence: None)
  Receive Date: 20080926
  Receipt Date: 20080916
  Transmission Date: 20090109
  Serious: Yes (Death)
  Sender: FDA-Public Use
  Company Number: JP-PFIZER INC-2008059642

PATIENT
  Sex: Female

DRUGS (12)
  1. CELECOX [Suspect]
     Indication: RHEUMATOID ARTHRITIS
     Route: 048
     Dates: start: 20070627, end: 20080616
  2. METHOTREXATE [Suspect]
     Indication: RHEUMATOID ARTHRITIS
     Dosage: DAILY DOSE:4MG
     Route: 048
     Dates: start: 20080416, end: 20080616
  3. AMLODIPINE BESYLATE [Concomitant]
     Indication: HYPERTENSION
     Dosage: DAILY DOSE:5MG
     Route: 048
     Dates: start: 20060920
  4. VALSARTAN [Concomitant]
     Indication: HYPERTENSION
     Dosage: DAILY DOSE:80MG
     Route: 048
     Dates: start: 20060125
  5. EVISTA [Concomitant]
     Indication: OSTEOPOROSIS
     Dosage: DAILY DOSE:60MG
     Route: 048
     Dates: start: 20070905
  6. GASMOTIN [Concomitant]
     Indication: GASTRITIS
     Dosage: DAILY DOSE:15MG
     Route: 048
     Dates: start: 20060128
  7. LENDORMIN [Concomitant]
     Indication: INSOMNIA
     Dosage: DAILY DOSE:.25MG
     Route: 048
     Dates: start: 20070131
  8. EURODIN [Concomitant]
     Indication: INSOMNIA
     Dosage: DAILY DOSE:2MG
     Route: 048
     Dates: start: 20080128
  9. EPINASTINE HYDROCHLORIDE [Concomitant]
     Indication: PRURITUS
     Dosage: DAILY DOSE:20MG
     Route: 048
     Dates: start: 20071114
  10. FERO-GRAD [Concomitant]
     Indication: ANAEMIA
     Dosage: DAILY DOSE:105MG
     Route: 048
     Dates: start: 20080430
  11. ELCATONIN [Concomitant]
     Indication: OSTEOPOROSIS
     Dosage: TEXT:20 UNITS
     Route: 030
     Dates: start: 20060111
  12. SULFASALAZINE [Concomitant]
     Indication: RHEUMATOID ARTHRITIS
     Dosage: DAILY DOSE:1000MG
     Dates: start: 20051019, end: 20080416

REACTIONS (1)
  - CARDIAC FAILURE [None]
